FAERS Safety Report 4929089-8 (Version None)
Quarter: 2006Q1

REPORT INFORMATION
  Report Type: 
  Country: None (occurrence: None)
  Receive Date: 20060301
  Receipt Date: 20050930
  Transmission Date: 20060701
  Serious: Yes (Hospitalization, Other)
  Sender: FDA-Public Use
  Company Number: US-MERCK-0510USA02044

PATIENT
  Age: 72 Year
  Sex: Male
  Weight: 82 kg

DRUGS (2)
  1. VIOXX [Suspect]
     Indication: ARTHRITIS
     Route: 048
     Dates: start: 19990501, end: 20020601
  2. VIOXX [Suspect]
     Indication: BACK PAIN
     Route: 048
     Dates: start: 19990501, end: 20020601

REACTIONS (9)
  - ANXIETY [None]
  - ARTHROPATHY [None]
  - BACK DISORDER [None]
  - CARDIOVASCULAR DISORDER [None]
  - CORONARY ARTERY DISEASE [None]
  - DEPRESSION [None]
  - GALLBLADDER DISORDER [None]
  - MYOCARDIAL ISCHAEMIA [None]
  - URETHRAL DISORDER [None]
